FAERS Safety Report 6755514-6 (Version None)
Quarter: 2010Q2

REPORT INFORMATION
  Report Type: 
  Country: None (occurrence: None)
  Receive Date: 20100602
  Receipt Date: 20100519
  Transmission Date: 20101027
  Serious: Yes (Hospitalization)
  Sender: FDA-Public Use
  Company Number: 552649

PATIENT
  Age: 60 Year
  Sex: Male

DRUGS (12)
  1. METHOTREXATE [Suspect]
     Dosage: 12 MG, INTRATHECAL
     Route: 037
     Dates: start: 20091129
  2. VINCRISTINE [Suspect]
     Dosage: 2 MG, INTRAVENOUS
     Route: 042
     Dates: start: 20091130
  3. ENDOXAN /00021101/) [Suspect]
     Dosage: 2200 MG, INTRAVENOUS
     Route: 042
     Dates: start: 20091130
  4. DOXORUBICIN HCL [Suspect]
     Dosage: 135 MG INTRAVENOUS
     Route: 042
     Dates: start: 20091130
  5. NEULASTA [Concomitant]
  6. DELTACORTENE [Concomitant]
  7. URBASON [Concomitant]
  8. UROMITEXAN [Concomitant]
  9. ZYLORIC [Concomitant]
  10. BACTRIM [Concomitant]
  11. CONCOR [Concomitant]
  12. KARVEA [Concomitant]

REACTIONS (3)
  - MUCOSAL INFLAMMATION [None]
  - PARAESTHESIA [None]
  - STOMATITIS [None]
